FAERS Safety Report 5136032-8 (Version None)
Quarter: 2006Q4

REPORT INFORMATION
  Report Type: 
  Country: None (occurrence: None)
  Receive Date: 20061023
  Receipt Date: 20061010
  Transmission Date: 20070319
  Serious: Yes (Other)
  Sender: FDA-Public Use
  Company Number: US-2006-023815

PATIENT
  Sex: Female

DRUGS (1)
  1. ULTRAVIST 370 [Suspect]
     Indication: ARTERIOGRAM CORONARY
     Dates: start: 20050531, end: 20050531

REACTIONS (2)
  - CEREBROVASCULAR ACCIDENT [None]
  - STATUS EPILEPTICUS [None]
